FAERS Safety Report 6803627-2 (Version None)
Quarter: 2010Q2

REPORT INFORMATION
  Report Type: 
  Country: None (occurrence: None)
  Receive Date: 20100628
  Receipt Date: 20100617
  Transmission Date: 20101027
  Serious: Yes (Hospitalization)
  Sender: FDA-Public Use
  Company Number: US-SANOFI-AVENTIS-2010SA035949

PATIENT
  Age: 53 Year
  Sex: Female

DRUGS (1)
  1. LANTUS [Suspect]
     Dosage: 50 UNITS DAILY TO BE INCREASED TO 60 UNITS DAILY DOSE:50 UNIT(S)
     Route: 058
     Dates: start: 20050101

REACTIONS (3)
  - BLOOD GLUCOSE INCREASED [None]
  - NEPHROLITHIASIS [None]
  - RENAL DISORDER [None]
